FAERS Safety Report 7229554-7 (Version None)
Quarter: 2011Q1

REPORT INFORMATION
  Report Type: 
  Country: None (occurrence: None)
  Receive Date: 20110117
  Receipt Date: 20100520
  Transmission Date: 20110831
  Serious: Yes (Other)
  Sender: FDA-Public Use
  Company Number: US-TYCO HEALTHCARE/MALLINCKRODT-T201001274

PATIENT

DRUGS (5)
  1. PREDNISONE [Concomitant]
     Indication: PREMEDICATION
     Dosage: 150 MG
     Dates: start: 20100503, end: 20100503
  2. OPTIRAY 350 [Suspect]
     Indication: COMPUTERISED TOMOGRAM
     Dosage: 96 ML, SINGLE
     Route: 042
     Dates: start: 20100503, end: 20100503
  3. BENADRYL [Concomitant]
     Indication: PREMEDICATION
     Dosage: UNK
  4. PREVACID [Concomitant]
     Dosage: UNK
  5. CELEBREX [Concomitant]
     Dosage: UNK

REACTIONS (4)
  - URTICARIA [None]
  - THROAT TIGHTNESS [None]
  - COUGH [None]
  - SNEEZING [None]
